FAERS Safety Report 5212594-7 (Version None)
Quarter: 2007Q1

REPORT INFORMATION
  Report Type: 
  Country: None (occurrence: None)
  Receive Date: 20070118
  Receipt Date: 20070108
  Transmission Date: 20070707
  Serious: Yes (Disabling)
  Sender: FDA-Public Use
  Company Number: GB-PFIZER INC-2007002455

PATIENT
  Age: 12 Year
  Sex: Male
  Weight: 46.85 kg

DRUGS (1)
  1. VORICONAZOLE [Suspect]
     Indication: BRONCHOPULMONARY ASPERGILLOSIS ALLERGIC
     Route: 048

REACTIONS (6)
  - BLEPHARITIS [None]
  - EPHELIDES [None]
  - IRITIS [None]
  - OCULAR HYPERAEMIA [None]
  - SCLERITIS [None]
  - SUNBURN [None]
